FAERS Safety Report 23300310 (Version 2)
Quarter: 2023Q4

REPORT INFORMATION
  Report Type: Report from Study
  Country: BR (occurrence: BR)
  Receive Date: 20231215
  Receipt Date: 20231226
  Transmission Date: 20240110
  Serious: Yes (Death, Other)
  Sender: FDA-Public Use
  Company Number: BR-Ipsen Biopharmaceuticals, Inc.-2023-27648

PATIENT
  Age: 76 Year
  Sex: Male

DRUGS (1)
  1. LANREOTIDE ACETATE [Suspect]
     Active Substance: LANREOTIDE ACETATE
     Indication: Neuroendocrine tumour
     Route: 058

REACTIONS (1)
  - Death [Fatal]
